FAERS Safety Report 7597315-5 (Version None)
Quarter: 2011Q3

REPORT INFORMATION
  Report Type: 
  Country: None (occurrence: None)
  Receive Date: 20110708
  Receipt Date: 20110428
  Transmission Date: 20111222
  Serious: No
  Sender: FDA-Public Use
  Company Number: US-GLAXOSMITHKLINE-A0924927A

PATIENT
  Age: 65 Year
  Sex: Male

DRUGS (2)
  1. NO CONCURRENT MEDICATION [Concomitant]
  2. FLOVENT [Suspect]
     Indication: OESOPHAGEAL DISORDER
     Dosage: 2PUFF TWICE PER DAY
     Route: 055
     Dates: start: 20110422

REACTIONS (1)
  - PAIN [None]
